FAERS Safety Report 7062099-6 (Version None)
Quarter: 2010Q4

REPORT INFORMATION
  Report Type: 
  Country: None (occurrence: None)
  Receive Date: 20101026
  Receipt Date: 20101013
  Transmission Date: 20110411
  Serious: Yes (Hospitalization)
  Sender: FDA-Public Use
  Company Number: PHHY2010JP68738

PATIENT
  Age: 80 Year
  Sex: Female

DRUGS (1)
  1. TEGRETOL [Suspect]
     Indication: TRIGEMINAL NEURALGIA
     Dosage: UNK
     Route: 048
     Dates: end: 20100212

REACTIONS (4)
  - DRUG LEVEL INCREASED [None]
  - DYSLALIA [None]
  - MOVEMENT DISORDER [None]
  - POST HERPETIC NEURALGIA [None]
